FAERS Safety Report 9347397 (Version 1)
Quarter: 2013Q2

REPORT INFORMATION
  Report Type: Spontaneous
  Country: GB (occurrence: GB)
  Receive Date: 20130613
  Receipt Date: 20130613
  Transmission Date: 20140414
  Serious: Yes (Disabling, Other)
  Sender: FDA-Public Use
  Company Number: GB-TEVA-410791ISR

PATIENT
  Age: 88 Year
  Sex: Male
  Weight: 86 kg

DRUGS (2)
  1. METHOTREXATE [Suspect]
     Indication: ARTHRITIS
     Dates: start: 20110410, end: 20120816
  2. FOLIC ACID [Concomitant]
     Dosage: TAKEN 4 DAYS AFTER METHOTREXATE

REACTIONS (3)
  - Ototoxicity [Unknown]
  - Sudden hearing loss [Unknown]
  - Sudden hearing loss [Unknown]
